FAERS Safety Report 14280271 (Version 1)
Quarter: 2017Q4

REPORT INFORMATION
  Report Type: Report from Study
  Country: US (occurrence: US)
  Receive Date: 20171213
  Receipt Date: 20171213
  Transmission Date: 20180321
  Serious: Yes (Other)
  Sender: FDA-Public Use
  Company Number: US-SHIRE-US201731596

PATIENT
  Sex: Female

DRUGS (1)
  1. NATPARA (PARATHYROID HORMONE) [Suspect]
     Active Substance: PARATHYROID HORMONE
     Indication: HYPOPARATHYROIDISM
     Dosage: 50 ?G, 1X/DAY:QD
     Route: 058
     Dates: start: 20160831

REACTIONS (8)
  - Sepsis [Unknown]
  - Kidney hypermobility [Unknown]
  - Urinary tract infection [Unknown]
  - Blood urine present [Unknown]
  - Malaise [Unknown]
  - Infection [Unknown]
  - Sinusitis [Unknown]
  - Lymph gland infection [Unknown]
